FAERS Safety Report 21042207 (Version 3)
Quarter: 2022Q3

REPORT INFORMATION
  Report Type: Spontaneous
  Country: US (occurrence: US)
  Receive Date: 20220705
  Receipt Date: 20220728
  Transmission Date: 20221026
  Serious: No
  Sender: FDA-Public Use
  Company Number: US-PHARMING-PHAUS2022000422

PATIENT

DRUGS (14)
  1. RUCONEST [Suspect]
     Active Substance: HUMAN C1-ESTERASE INHIBITOR
     Indication: Hereditary angioedema
     Dosage: 4200 IU, EVERY THREE-FOUR DAYS
     Route: 042
     Dates: start: 20190122
  2. RUCONEST [Suspect]
     Active Substance: HUMAN C1-ESTERASE INHIBITOR
     Dosage: 4200 IU, EVERY THREE-FOUR DAYS
     Route: 042
     Dates: start: 20220630
  3. MULTIVITAMINS                      /00116001/ [Concomitant]
     Indication: Product used for unknown indication
  4. VITAMIN D                          /00107901/ [Concomitant]
     Indication: Product used for unknown indication
  5. ZINC [Concomitant]
     Active Substance: ZINC
     Indication: Product used for unknown indication
  6. HAEGARDA [Concomitant]
     Active Substance: HUMAN C1-ESTERASE INHIBITOR
     Indication: Product used for unknown indication
  7. FIRAZYR [Concomitant]
     Active Substance: ICATIBANT ACETATE
     Indication: Product used for unknown indication
  8. EPINEPHRINE [Concomitant]
     Active Substance: EPINEPHRINE
     Indication: Product used for unknown indication
  9. ZINC LOZENGES                      /09621301/ [Concomitant]
     Indication: Product used for unknown indication
  10. DIPHENHYDRAMINE HYDROCHLORIDE [Concomitant]
     Active Substance: DIPHENHYDRAMINE HYDROCHLORIDE
     Indication: Product used for unknown indication
  11. QUERCETIN DIHYDRATE [Concomitant]
     Active Substance: QUERCETIN DIHYDRATE
     Indication: Product used for unknown indication
  12. ICATIBANT [Concomitant]
     Active Substance: ICATIBANT ACETATE
     Indication: Product used for unknown indication
  13. KALBITOR [Concomitant]
     Active Substance: ECALLANTIDE
     Indication: Product used for unknown indication
  14. VITAMIN C [Concomitant]
     Active Substance: ASCORBIC ACID
     Indication: Product used for unknown indication

REACTIONS (6)
  - Blood pressure increased [Unknown]
  - Somnolence [Unknown]
  - Constipation [Unknown]
  - Intentional product use issue [Unknown]
  - Headache [Unknown]
  - Diarrhoea [Unknown]
